FAERS Safety Report 13288044 (Version 1)
Quarter: 2017Q1

REPORT INFORMATION
  Report Type: Report from Study
  Country: IN (occurrence: IN)
  Receive Date: 20170302
  Receipt Date: 20170302
  Transmission Date: 20170428
  Serious: Yes (Other)
  Sender: FDA-Public Use
  Company Number: IN-ACCORD-048619

PATIENT

DRUGS (1)
  1. CLOZAPINE. [Suspect]
     Active Substance: CLOZAPINE
     Indication: PSYCHOTIC DISORDER

REACTIONS (6)
  - Dysuria [Unknown]
  - Micturition urgency [Unknown]
  - Hypertonic bladder [Unknown]
  - Enuresis [Unknown]
  - Detrusor sphincter dyssynergia [Unknown]
  - Urinary incontinence [Unknown]
